FAERS Safety Report 12200570 (Version 1)
Quarter: 2016Q1

REPORT INFORMATION
  Report Type: Spontaneous
  Country: US (occurrence: US)
  Receive Date: 20160322
  Receipt Date: 20160322
  Transmission Date: 20160526
  Serious: Yes (Hospitalization)
  Sender: FDA-Public Use
  Company Number: US-PURDUE PHARMA-USA-2016-0129742

PATIENT
  Sex: Female

DRUGS (1)
  1. PERI-COLACE [Suspect]
     Active Substance: CASANTHRANOL\DOCUSATE SODIUM
     Indication: CONSTIPATION
     Route: 048

REACTIONS (6)
  - Syncope [Unknown]
  - Fall [Unknown]
  - Haemorrhage [Unknown]
  - Constipation [Unknown]
  - Drug dose omission [Unknown]
  - Unevaluable event [Unknown]
